FAERS Safety Report 5165547-1 (Version None)
Quarter: 2006Q4

REPORT INFORMATION
  Report Type: 
  Country: None (occurrence: None)
  Receive Date: 20061124
  Receipt Date: 20061108
  Transmission Date: 20070319
  Serious: Yes (Hospitalization)
  Sender: FDA-Public Use
  Company Number: 2006013173

PATIENT
  Age: 67 Year
  Sex: Male
  Weight: 88 kg

DRUGS (3)
  1. SUTENT [Suspect]
     Indication: RENAL CELL CARCINOMA STAGE UNSPECIFIED
     Dosage: 50 MG (50 MG, 1 IN 1 D), ORAL
     Route: 048
     Dates: start: 20060112
  2. PREVISCAN (FLUINDIONE) [Suspect]
     Dosage: SEE IMAGE
     Route: 048
     Dates: start: 20050401, end: 20060120
  3. PREVISCAN (FLUINDIONE) [Suspect]
     Dosage: SEE IMAGE
     Route: 048
     Dates: start: 20060124, end: 20060124

REACTIONS (7)
  - ABDOMINAL PAIN [None]
  - ALANINE AMINOTRANSFERASE INCREASED [None]
  - ASPARTATE AMINOTRANSFERASE INCREASED [None]
  - BLOOD BILIRUBIN INCREASED [None]
  - CELL DEATH [None]
  - DRUG INTERACTION [None]
  - INTERNATIONAL NORMALISED RATIO INCREASED [None]
